FAERS Safety Report 14049692 (Version 1)
Quarter: 2017Q4

REPORT INFORMATION
  Report Type: Spontaneous
  Country: US (occurrence: US)
  Receive Date: 20171005
  Receipt Date: 20171005
  Transmission Date: 20180321
  Serious: Yes (Hospitalization)
  Sender: FDA-Public Use
  Company Number: US-FRESENIUS MEDICAL CARE RENAL THERAPIES GROUP-FMC-1709-001019

PATIENT
  Age: 16 Year
  Sex: Female
  Weight: 43.5 kg

DRUGS (23)
  1. POLYETHYLENE GLYCOL [Concomitant]
     Active Substance: POLYETHYLENE GLYCOLS
  2. PREDNISONE. [Concomitant]
     Active Substance: PREDNISONE
  3. BISACODYL. [Concomitant]
     Active Substance: BISACODYL
  4. ROCALTROL [Concomitant]
     Active Substance: CALCITRIOL
  5. CETIRIZINE [Concomitant]
     Active Substance: CETIRIZINE HYDROCHLORIDE
  6. OMEPRAZOLE. [Concomitant]
     Active Substance: OMEPRAZOLE
  7. ETHINYLESTRADIOL [Concomitant]
     Active Substance: ETHINYL ESTRADIOL
  8. LAMICTAL [Concomitant]
     Active Substance: LAMOTRIGINE
  9. SIMETHICONE (DIMETHICONE) [Concomitant]
     Active Substance: DIMETHICONE
  10. DELFLEX [Suspect]
     Active Substance: CALCIUM CHLORIDE\DEXTROSE\MAGNESIUM CHLORIDE\SODIUM CHLORIDE\SODIUM LACTATE
     Indication: END STAGE RENAL DISEASE
     Route: 033
  11. LIPITOR [Concomitant]
     Active Substance: ATORVASTATIN CALCIUM
  12. CYCLOBENZAPRINE. [Concomitant]
     Active Substance: CYCLOBENZAPRINE
  13. EPOGEN [Concomitant]
     Active Substance: ERYTHROPOIETIN
  14. GLYCERINE [Concomitant]
     Active Substance: GLYCERIN
  15. RENVELA [Concomitant]
     Active Substance: SEVELAMER CARBONATE
  16. LEVOTHYROXINE. [Concomitant]
     Active Substance: LEVOTHYROXINE
  17. TACROLIMUS. [Concomitant]
     Active Substance: TACROLIMUS
  18. TENEX [Concomitant]
     Active Substance: GUANFACINE HYDROCHLORIDE
  19. LABETALOL [Concomitant]
     Active Substance: LABETALOL\LABETALOL HYDROCHLORIDE
  20. NOVOLOG [Concomitant]
     Active Substance: INSULIN ASPART
  21. CALCIUM CARBONATE. [Concomitant]
     Active Substance: CALCIUM CARBONATE
  22. CHOLECALCIFEROL [Concomitant]
     Active Substance: CHOLECALCIFEROL
  23. DIPHENHYDRAMINE. [Concomitant]
     Active Substance: DIPHENHYDRAMINE

REACTIONS (1)
  - Abdominal pain [Recovered/Resolved]

NARRATIVE: CASE EVENT DATE: 20170720
